FAERS Safety Report 25066076 (Version 3)
Quarter: 2025Q2

REPORT INFORMATION
  Report Type: Spontaneous
  Country: IT (occurrence: IT)
  Receive Date: 20250312
  Receipt Date: 20250404
  Transmission Date: 20250716
  Serious: Yes (Death, Life-Threatening, Other)
  Sender: CELLTRION
  Company Number: IT-PFIZER INC-PV202400119949

PATIENT

DRUGS (3)
  1. RITUXIMAB [Suspect]
     Active Substance: RITUXIMAB
     Indication: Diffuse large B-cell lymphoma
     Route: 065
  2. RITUXIMAB [Suspect]
     Active Substance: RITUXIMAB
     Route: 065
  3. RITUXIMAB [Suspect]
     Active Substance: RITUXIMAB
     Route: 065

REACTIONS (6)
  - Diffuse large B-cell lymphoma [Fatal]
  - Disease progression [Fatal]
  - Immunoglobulins decreased [Unknown]
  - Intervertebral discitis [Recovered/Resolved]
  - Hypogammaglobulinaemia [Unknown]
  - Mycoplasma infection [Recovered/Resolved]
